FAERS Safety Report 5855986-5 (Version None)
Quarter: 2008Q3

REPORT INFORMATION
  Report Type: 
  Country: None (occurrence: None)
  Receive Date: 20080821
  Receipt Date: 20080808
  Transmission Date: 20090109
  Serious: Yes (Death)
  Sender: FDA-Public Use
  Company Number: MPS1-1000017

PATIENT
  Age: 18 Year
  Sex: Male
  Weight: 90 kg

DRUGS (8)
  1. ALDURAZYME [Suspect]
     Indication: MUCOPOLYSACCHARIDOSIS I
     Dosage: 1.74 MG, ONCE, INTRATHECAL; INTRAVENOUS
     Dates: start: 19980313, end: 20080123
  2. ALDURAZYME [Suspect]
     Indication: MUCOPOLYSACCHARIDOSIS I
     Dosage: 1.74 MG, ONCE, INTRATHECAL; INTRAVENOUS
     Dates: start: 20080124, end: 20080124
  3. DURAGESIC-100 [Suspect]
     Indication: HEADACHE
     Dosage: 50 OTHER, ONCE, TRANSDERMAL
     Route: 062
     Dates: start: 20080125, end: 20080126
  4. DURAGESIC-100 [Suspect]
     Indication: NECK PAIN
     Dosage: 50 OTHER, ONCE, TRANSDERMAL
     Route: 062
     Dates: start: 20080125, end: 20080126
  5. BENADRYL (DIPHENHYDRAMINE HYDROCHLORIDE) SOLUTION FOR INFUSION [Concomitant]
  6. ADVIL [Concomitant]
  7. ADVIL [Concomitant]
  8. ADVIL [Concomitant]

REACTIONS (11)
  - CONGESTIVE CARDIOMYOPATHY [None]
  - DISEASE PROGRESSION [None]
  - HEADACHE [None]
  - HYPERSENSITIVITY [None]
  - INFUSION RELATED REACTION [None]
  - INTRACRANIAL PRESSURE INCREASED [None]
  - MYOCARDIAL FIBROSIS [None]
  - NECK PAIN [None]
  - PHARMACEUTICAL PRODUCT COMPLAINT [None]
  - SELF-MEDICATION [None]
  - WRONG DRUG ADMINISTERED [None]
